FAERS Safety Report 6909491-5 (Version None)
Quarter: 2010Q3

REPORT INFORMATION
  Report Type: 
  Country: None (occurrence: None)
  Receive Date: 20100805
  Receipt Date: 20100720
  Transmission Date: 20110219
  Serious: Yes (Hospitalization, Other)
  Sender: FDA-Public Use
  Company Number: US-CELGENEUS-163-CCAZA-10072181

PATIENT
  Age: 56 Year
  Sex: Male

DRUGS (2)
  1. AZACITIDINE [Suspect]
     Route: 065
  2. BROAD SPECTRUM ANTIBIOTICS [Concomitant]
     Indication: PRODUCT USED FOR UNKNOWN INDICATION
     Route: 065

REACTIONS (1)
  - INTERSTITIAL LUNG DISEASE [None]
